FAERS Safety Report 4500592-8 (Version None)
Quarter: 2004Q4

REPORT INFORMATION
  Report Type: 
  Country: None (occurrence: None)
  Receive Date: 20041112
  Receipt Date: 20041112
  Transmission Date: 20050328
  Serious: Yes (Hospitalization)
  Sender: FDA-Public Use
  Company Number: None

PATIENT
  Age: 72 Year
  Sex: Male
  Weight: 98.4306 kg

DRUGS (2)
  1. NORVASC [Suspect]
     Indication: HYPERTENSION
     Dosage: 10 MG PO DAILY
     Route: 048
     Dates: end: 20040907
  2. ATENOLOL [Suspect]
     Indication: ATRIAL FIBRILLATION
     Dosage: 100 MG PO DAILY
     Route: 048
     Dates: end: 20040907

REACTIONS (4)
  - DYSPNOEA [None]
  - MELAENA [None]
  - ORTHOSTATIC HYPOTENSION [None]
  - PULMONARY EMBOLISM [None]
